FAERS Safety Report 9725558 (Version 1)
Quarter: 2013Q4

REPORT INFORMATION
  Report Type: Spontaneous
  Country: US (occurrence: US)
  Receive Date: 20131203
  Receipt Date: 20131203
  Transmission Date: 20140711
  Serious: Yes (Other)
  Sender: FDA-Public Use
  Company Number: US-RB-060442-13

PATIENT
  Age: 65 Year
  Sex: Male

DRUGS (1)
  1. MUCINEX D MAXIMUM STRENGTH [Suspect]
     Indication: PRODUCT USED FOR UNKNOWN INDICATION
     Dosage: 1 TABLET EVERY 12 HOURS
     Route: 048
     Dates: start: 20131111

REACTIONS (1)
  - Hypertension [Not Recovered/Not Resolved]
